FAERS Safety Report 5674567-X (Version None)
Quarter: 2008Q2

REPORT INFORMATION
  Report Type: 
  Country: None (occurrence: None)
  Receive Date: 20080304
  Receipt Date: 20071217
  Transmission Date: 20081010
  Serious: Yes (Hospitalization)
  Sender: FDA-Public Use
  Company Number: WAES 0801USA04426

PATIENT
  Age: 56 Year
  Sex: Female

DRUGS (12)
  1. PRINIVIL [Suspect]
     Indication: HYPERTENSION
  2. HYDRODIURIL [Suspect]
     Indication: HYPERTENSION
  3. INFUSION (FORM) IXABEPILONE [Suspect]
     Indication: BREAST CANCER
     Dates: start: 20071214
  4. CAPECITABINE UNK [Suspect]
     Indication: BREAST CANCER
  5. CELEBREX [Concomitant]
  6. COMPAZINE [Concomitant]
  7. DARVOCET-N 100 [Concomitant]
  8. DURAGESIC-100 [Concomitant]
  9. NEURONTIN [Concomitant]
  10. PRILOSEC [Concomitant]
  11. TUMS [Concomitant]
  12. ACYCLOVIR SODIUM [Concomitant]

REACTIONS (3)
  - ANGIOEDEMA [None]
  - DYSPHAGIA [None]
  - PRURITUS [None]
